FAERS Safety Report 18555367 (Version 2)
Quarter: 2020Q4

REPORT INFORMATION
  Report Type: Spontaneous
  Country: US (occurrence: US)
  Receive Date: 20201127
  Receipt Date: 20201127
  Transmission Date: 20210114
  Serious: No
  Sender: FDA-Public Use
  Company Number: US-NOVOPROD-730481

PATIENT
  Sex: Female

DRUGS (4)
  1. NOVOLIN N [Suspect]
     Active Substance: INSULIN HUMAN
     Indication: DIABETES MELLITUS
     Dosage: 53 IU, QD (35 UNITS IN THE MORNING 18 UNITS IN THE EVENING)
     Route: 058
     Dates: start: 2001
  2. NOVOLIN N [Suspect]
     Active Substance: INSULIN HUMAN
     Dosage: UNK (RATIONING INSULIN)
     Route: 058
  3. NOVOLIN R [Suspect]
     Active Substance: INSULIN HUMAN
     Indication: DIABETES MELLITUS
     Dosage: 18 IU, QD (11 UNITS IN AM + 7 UNITS IN PM)
     Route: 058
     Dates: start: 2001
  4. NOVOLIN R [Suspect]
     Active Substance: INSULIN HUMAN
     Dosage: UNK (RATIONING INSULIN)
     Route: 058

REACTIONS (2)
  - Skin ulcer [Recovering/Resolving]
  - Intentional product use issue [Not Recovered/Not Resolved]

NARRATIVE: CASE EVENT DATE: 2017
